FAERS Safety Report 9003059 (Version 3)
Quarter: 2013Q3

REPORT INFORMATION
  Report Type: Report from Study
  Country: DE (occurrence: DE)
  Receive Date: 20130108
  Receipt Date: 20130926
  Transmission Date: 20140515
  Serious: Yes (Death, Other)
  Sender: FDA-Public Use
  Company Number: DE-ROCHE-773417

PATIENT
  Age: 72 Year
  Sex: Female
  Weight: 60.8 kg

DRUGS (1)
  1. METHOXY POLYETHYLENE GLYCOL-EPOETIN BETA [Suspect]
     Indication: NEPHROGENIC ANAEMIA
     Route: 065

REACTIONS (2)
  - Gastrointestinal haemorrhage [Fatal]
  - Haemoglobin decreased [Recovered/Resolved]
